FAERS Safety Report 7420327-9 (Version None)
Quarter: 2011Q2

REPORT INFORMATION
  Report Type: 
  Country: None (occurrence: None)
  Receive Date: 20110418
  Receipt Date: 20110407
  Transmission Date: 20111010
  Serious: Yes (Other)
  Sender: FDA-Public Use
  Company Number: JP-JNJFOC-20100800734

PATIENT
  Sex: Female
  Weight: 53 kg

DRUGS (5)
  1. DOXORUBICIN HCL [Suspect]
     Dosage: CYCLE 3
     Route: 042
  2. UNKNOWN MEDICATION [Suspect]
     Indication: PRODUCT USED FOR UNKNOWN INDICATION
     Route: 065
  3. DOXORUBICIN HCL [Suspect]
     Indication: ADENOCARCINOMA OF THE CERVIX
     Dosage: CYCLE 1
     Route: 042
  4. DOXORUBICIN HCL [Suspect]
     Dosage: CYCLE 4
     Route: 042
  5. DOXORUBICIN HCL [Suspect]
     Dosage: CYCLE 2
     Route: 042

REACTIONS (2)
  - OFF LABEL USE [None]
  - BLOOD PRESSURE DECREASED [None]
